FAERS Safety Report 5411847-7 (Version None)
Quarter: 2007Q3

REPORT INFORMATION
  Report Type: 
  Country: None (occurrence: None)
  Receive Date: 20070713
  Receipt Date: 20070321
  Transmission Date: 20080115
  Serious: No
  Sender: FDA-Public Use
  Company Number: 2007SP001031

PATIENT
  Age: 73 Year
  Sex: Male

DRUGS (12)
  1. LUNESTA [Suspect]
     Indication: INSOMNIA
     Dosage: 2 MG;PRN;ORAL
     Route: 048
     Dates: start: 20070320
  2. LASIX [Concomitant]
  3. PLAVIX [Concomitant]
  4. POTASSIUM CHLORIDE [Concomitant]
  5. ISOSORBIDE DINITRATE [Concomitant]
  6. AMARYL [Concomitant]
  7. ASPIRIN [Concomitant]
  8. XANAX [Concomitant]
  9. SINEMET [Concomitant]
  10. OXYGEN [Concomitant]
  11. AMBIEN [Concomitant]
  12. RESTORIL [Concomitant]

REACTIONS (2)
  - MIDDLE INSOMNIA [None]
  - SOMNOLENCE [None]
